FAERS Safety Report 7512565-1 (Version None)
Quarter: 2011Q2

REPORT INFORMATION
  Report Type: 
  Country: None (occurrence: None)
  Receive Date: 20110531
  Receipt Date: 20110519
  Transmission Date: 20111010
  Serious: No
  Sender: FDA-Public Use
  Company Number: JP-ASTRAZENECA-2011SE12884

PATIENT
  Age: 85 Year
  Sex: Male

DRUGS (6)
  1. ZOLADEX [Suspect]
     Indication: PROSTATE CANCER
     Route: 058
     Dates: start: 20100603, end: 20110217
  2. ALTAT [Concomitant]
     Dosage: DAILY
     Route: 048
  3. GASLON N [Concomitant]
     Dosage: DAILY
     Route: 048
  4. MIGLITOL [Concomitant]
     Indication: DIABETES MELLITUS
     Dosage: THREE TIMES DAILY
     Route: 048
  5. URIEF [Concomitant]
     Indication: BENIGN PROSTATIC HYPERPLASIA
     Route: 048
  6. CASODEX [Suspect]
     Indication: PROSTATE CANCER
     Route: 048
     Dates: start: 20100603, end: 20110217

REACTIONS (1)
  - HYPERGLYCAEMIA [None]
